FAERS Safety Report 9456792 (Version 1)
Quarter: 2013Q3

REPORT INFORMATION
  Report Type: Spontaneous
  Country: CA (occurrence: CA)
  Receive Date: 20130813
  Receipt Date: 20130813
  Transmission Date: 20140515
  Serious: Yes (Death, Hospitalization)
  Sender: FDA-Public Use
  Company Number: CA-CELGENEUS-028-21880-13081163

PATIENT
  Age: 74 Year
  Sex: Female

DRUGS (3)
  1. REVLIMID [Suspect]
     Indication: PLASMA CELL MYELOMA
     Route: 048
     Dates: start: 20130207
  2. REVLIMID [Suspect]
     Route: 048
     Dates: start: 20130613
  3. REVLIMID [Suspect]
     Route: 048
     Dates: start: 20130704, end: 2013

REACTIONS (1)
  - Death [Fatal]
